FAERS Safety Report 13510224 (Version 1)
Quarter: 2017Q2

REPORT INFORMATION
  Report Type: Spontaneous
  Country: US (occurrence: US)
  Receive Date: 20170503
  Receipt Date: 20170503
  Transmission Date: 20170830
  Serious: Yes (Other)
  Sender: FDA-Public Use
  Company Number: US-ASTRAZENECA-2017SE43201

PATIENT
  Sex: Female

DRUGS (9)
  1. LETROZOLE. [Concomitant]
     Active Substance: LETROZOLE
  2. TAMOXIFEN [Suspect]
     Active Substance: TAMOXIFEN
     Indication: BREAST CANCER FEMALE
     Route: 048
  3. EXEMESTANE. [Concomitant]
     Active Substance: EXEMESTANE
  4. XGEVA [Concomitant]
     Active Substance: DENOSUMAB
  5. METHOTREXATE SODIUM. [Concomitant]
     Active Substance: METHOTREXATE SODIUM
     Route: 048
  6. FASLODEX [Suspect]
     Active Substance: FULVESTRANT
     Indication: BREAST CANCER FEMALE
     Route: 030
  7. TAXOL [Concomitant]
     Active Substance: PACLITAXEL
  8. MULTIVITAMIN [Concomitant]
     Active Substance: VITAMINS
     Route: 048
  9. PALBOCICLIB [Concomitant]
     Active Substance: PALBOCICLIB
     Indication: BREAST CANCER FEMALE
     Route: 048
     Dates: start: 20161219, end: 20170326

REACTIONS (11)
  - Hypoaesthesia [Unknown]
  - Vertigo [Unknown]
  - Anaemia [Unknown]
  - Rash [Unknown]
  - Musculoskeletal chest pain [Not Recovered/Not Resolved]
  - Rheumatoid arthritis [Unknown]
  - Malignant neoplasm progression [Unknown]
  - Facial nerve disorder [Unknown]
  - Metastases to bone [Unknown]
  - Febrile neutropenia [Unknown]
  - Neutropenia [Unknown]
